FAERS Safety Report 5377800-7 (Version None)
Quarter: 2007Q3

REPORT INFORMATION
  Report Type: 
  Country: None (occurrence: None)
  Receive Date: 20070703
  Receipt Date: 20070622
  Transmission Date: 20080115
  Serious: Yes (Other)
  Sender: FDA-Public Use
  Company Number: US-PFIZER INC-2007052325

PATIENT
  Sex: Male
  Weight: 83.9 kg

DRUGS (8)
  1. GEODON [Suspect]
     Indication: BIPOLAR I DISORDER
     Route: 048
  2. ESKALITH [Concomitant]
  3. PAXIL [Concomitant]
  4. SYNTHROID [Concomitant]
  5. SEROQUEL [Concomitant]
  6. ATIVAN [Concomitant]
  7. KLONOPIN [Concomitant]
  8. WELLBUTRIN [Concomitant]

REACTIONS (1)
  - DRUG DEPENDENCE [None]
